FAERS Safety Report 20733069 (Version 1)
Quarter: 2022Q2

REPORT INFORMATION
  Report Type: Spontaneous
  Country: US (occurrence: US)
  Receive Date: 20220421
  Receipt Date: 20220421
  Transmission Date: 20220720
  Serious: No
  Sender: FDA-Public Use
  Company Number: US-drreddys-SPO/USA/22/0148996

PATIENT
  Age: 44 Year
  Sex: Female

DRUGS (2)
  1. ZENATANE [Suspect]
     Active Substance: ISOTRETINOIN
     Indication: Product used for unknown indication
     Dosage: RMA ISSUE DATE: 10 SEPTEMBER 2021 08:46:17 AM
  2. ZENATANE [Suspect]
     Active Substance: ISOTRETINOIN
     Dosage: RMA ISSUE DATE: 12 OCTOBER 2021 10:10:45 AM, 12 NOVEMBER 2021 08:58:24 AM, 28 JANUARY 2022 07:54:14

REACTIONS (1)
  - Gastrointestinal disorder [Unknown]
